FAERS Safety Report 9861352 (Version 2)
Quarter: 2014Q1

REPORT INFORMATION
  Report Type: Report from Study
  Country: AR (occurrence: AR)
  Receive Date: 20140203
  Receipt Date: 20140306
  Transmission Date: 20141002
  Serious: Yes (Hospitalization)
  Sender: FDA-Public Use
  Company Number: AR-ROCHE-1338408

PATIENT
  Sex: Female

DRUGS (5)
  1. MABTHERA [Suspect]
     Indication: RHEUMATOID ARTHRITIS
     Route: 065
     Dates: start: 20081107
  2. ACTEMRA [Suspect]
     Indication: RHEUMATOID ARTHRITIS
     Route: 065
  3. ETANERCEPT [Concomitant]
     Indication: RHEUMATOID ARTHRITIS
  4. ADALIMUMAB [Concomitant]
     Indication: RHEUMATOID ARTHRITIS
  5. REMICADE [Concomitant]
     Indication: RHEUMATOID ARTHRITIS

REACTIONS (2)
  - Surgery [Recovered/Resolved]
  - Knee arthroplasty [Recovered/Resolved]
